FAERS Safety Report 16295840 (Version 1)
Quarter: 2019Q2

REPORT INFORMATION
  Report Type: Spontaneous
  Country: US (occurrence: US)
  Receive Date: 20190510
  Receipt Date: 20190510
  Transmission Date: 20190711
  Serious: Yes (Other)
  Sender: FDA-Public Use
  Company Number: US-ALKERMES INC.-ALK-2019-000998

PATIENT

DRUGS (2)
  1. VIVITROL [Suspect]
     Active Substance: NALTREXONE
     Indication: DRUG DEPENDENCE
     Dosage: 380 MG, QMO
     Route: 030
  2. NALTREXONE [Concomitant]
     Active Substance: NALTREXONE
     Indication: DRUG DEPENDENCE
     Dosage: 50 MG, UNK
     Route: 048

REACTIONS (2)
  - Anxiety [Unknown]
  - Alcohol use [Unknown]
